FAERS Safety Report 5276812-1 (Version None)
Quarter: 2007Q1

REPORT INFORMATION
  Report Type: 
  Country: None (occurrence: None)
  Receive Date: 20070327
  Receipt Date: 20060824
  Transmission Date: 20070707
  Serious: Yes (Other)
  Sender: FDA-Public Use
  Company Number: CH-JNJFOC-20051004747

PATIENT
  Sex: Female
  Weight: 70 kg

DRUGS (2)
  1. DURAGESIC-100 [Suspect]
     Indication: DRUG USE FOR UNKNOWN INDICATION
     Route: 062
  2. FOSAMAX [Concomitant]
     Indication: OSTEOPOROSIS
     Route: 065

REACTIONS (7)
  - CONTUSION [None]
  - FALL [None]
  - HAND FRACTURE [None]
  - NAUSEA [None]
  - PERIORBITAL HAEMATOMA [None]
  - SYNCOPE [None]
  - VERTIGO [None]
